FAERS Safety Report 6958963 (Version 2)
Quarter: 2018Q4

REPORT INFORMATION
  Report Type: Spontaneous
  Country: GB (occurrence: GB)
  Receive Date: 20090402
  Receipt Date: 20181008
  Transmission Date: 20190205
  Serious: Yes (Other)
  Sender: FDA-Public Use
  Company Number: GB-TEVA-158283ISR

PATIENT
  Age: 42 Year
  Sex: Male
  Weight: 79.6 kg

DRUGS (6)
  1. SIMVASTATIN. [Concomitant]
     Active Substance: SIMVASTATIN
     Dosage: 40 MILLIGRAM DAILY;
  2. DIAZEPAM. [Suspect]
     Active Substance: DIAZEPAM
     Indication: PANIC ATTACK
     Dates: start: 20011019, end: 20020704
  3. RISPERDAL [Concomitant]
     Active Substance: RISPERIDONE
  4. MIRTAZAPIN [Concomitant]
     Active Substance: MIRTAZAPINE
     Dates: end: 20011019
  5. DIAZEPAM. [Suspect]
     Active Substance: DIAZEPAM
     Dates: start: 20041202
  6. TEMAZEPAM. [Suspect]
     Active Substance: TEMAZEPAM
     Dosage: 10 MILLIGRAM DAILY;
     Dates: start: 20020704

REACTIONS (6)
  - Depression [Unknown]
  - Depression [Recovered/Resolved]
  - Panic attack [Unknown]
  - Diabetic coma [Unknown]
  - Hallucination, auditory [Recovered/Resolved]
  - Type 1 diabetes mellitus [Recovered/Resolved]

NARRATIVE: CASE EVENT DATE: 20020403
